FAERS Safety Report 10056497 (Version 1)
Quarter: 2014Q2

REPORT INFORMATION
  Report Type: Spontaneous
  Country: US (occurrence: US)
  Receive Date: 20140403
  Receipt Date: 20140403
  Transmission Date: 20141212
  Serious: No
  Sender: FDA-Public Use
  Company Number: US-BAXTER-2007BH002576

PATIENT
  Age: 57 Year
  Sex: Female

DRUGS (3)
  1. CEFAZOLIN, SODIUM_CEFAZOLIN, SODIUM 20.00 MG/ML_SOLUTION FOR INFUSION_ [Suspect]
     Indication: CELLULITIS
     Route: 042
     Dates: start: 20070223, end: 20070226
  2. CEFAZOLIN, SODIUM_CEFAZOLIN, SODIUM 20.00 MG/ML_SOLUTION FOR INFUSION_ [Suspect]
     Indication: LYMPHANGITIS
  3. ASMANEX [Concomitant]
     Indication: ASTHMA

REACTIONS (1)
  - Infusion site reaction [Unknown]
